FAERS Safety Report 19951628 (Version 2)
Quarter: 2021Q4

REPORT INFORMATION
  Report Type: Spontaneous
  Country: US (occurrence: US)
  Receive Date: 20211013
  Receipt Date: 20211123
  Transmission Date: 20220303
  Serious: No
  Sender: FDA-Public Use
  Company Number: US-PFIZER INC-202101206903

PATIENT
  Age: 7 Month
  Sex: Male
  Weight: 5.4 kg

DRUGS (1)
  1. GENOTROPIN [Suspect]
     Active Substance: SOMATROPIN
     Indication: Prader-Willi syndrome
     Dosage: 0.2 MG, DAILY (DAILY AT BED TIME UNDER THE SKIN (ABDOMEN OR THIGH)
     Dates: start: 20210818

REACTIONS (1)
  - Device malfunction [Unknown]
